FAERS Safety Report 8985652 (Version 1)
Quarter: 2012Q4

REPORT INFORMATION
  Report Type: 
  Country: US (occurrence: US)
  Receive Date: 20121226
  Receipt Date: 20121226
  Transmission Date: 20130627
  Serious: No
  Sender: FDA-Public Use
  Company Number: US-PFIZER INC-2012322071

PATIENT
  Age: 53 Year
  Sex: Female
  Weight: 73 kg

DRUGS (3)
  1. PREMARIN VAGINAL CREAM [Suspect]
     Indication: MENOPAUSAL SYMPTOMS
     Dosage: UNK
     Route: 067
     Dates: start: 20121205, end: 20121208
  2. PREMARIN VAGINAL CREAM [Suspect]
     Dosage: UNK
     Route: 067
     Dates: start: 20121212, end: 20121214
  3. WELLBUTRIN XL [Concomitant]
     Dosage: 300 mg, UNK

REACTIONS (3)
  - Adnexa uteri pain [Recovered/Resolved]
  - Oedema genital [Recovering/Resolving]
  - Vulvovaginal discomfort [Unknown]
